FAERS Safety Report 9758209 (Version 1)
Quarter: 2013Q4

REPORT INFORMATION
  Report Type: Spontaneous
  Country: US (occurrence: US)
  Receive Date: 20131216
  Receipt Date: 20131216
  Transmission Date: 20140711
  Serious: Yes (Other)
  Sender: FDA-Public Use
  Company Number: US-TEVA-414254USA

PATIENT
  Age: 26 Year
  Sex: Female
  Weight: 54.48 kg

DRUGS (2)
  1. PARAGARD 380A [Suspect]
     Indication: CONTRACEPTION
     Route: 015
     Dates: start: 201106
  2. ZOLOFT [Concomitant]
     Indication: DEPRESSION

REACTIONS (1)
  - Device dislocation [Not Recovered/Not Resolved]
